FAERS Safety Report 7033046-8 (Version None)
Quarter: 2010Q4

REPORT INFORMATION
  Report Type: 
  Country: None (occurrence: None)
  Receive Date: 20101007
  Receipt Date: 20100928
  Transmission Date: 20110411
  Serious: Yes (Hospitalization)
  Sender: FDA-Public Use
  Company Number: DE-PFIZER INC-2010122909

PATIENT
  Age: 77 Year
  Sex: Female

DRUGS (8)
  1. SUNITINIB MALATE [Suspect]
     Indication: RENAL CELL CARCINOMA
     Dosage: UNK
     Route: 048
     Dates: start: 20100612, end: 20100805
  2. METOPROLOL SUCCINATE [Concomitant]
     Dosage: 95 MG, 1X/DAY
  3. AMLODIPINE [Concomitant]
     Dosage: 20 MG, 1X/DAY
  4. CATAPRESAN [Concomitant]
     Dosage: 300 MG, 1X/DAY
  5. EFEROX [Concomitant]
     Dosage: 100 MG, 1X/DAY
  6. BLOPRESS [Concomitant]
     Dosage: 32 MG, 1X/DAY
  7. ASPIRIN [Concomitant]
     Dosage: 100 MG, 1X/DAY
  8. HYDROCHLOROTHIAZIDE [Concomitant]
     Dosage: UNK

REACTIONS (1)
  - PULMONARY OEDEMA [None]
